FAERS Safety Report 8359257-7 (Version None)
Quarter: 2012Q2

REPORT INFORMATION
  Report Type: 
  Country: None (occurrence: None)
  Receive Date: 20120514
  Receipt Date: 20120514
  Transmission Date: 20120825
  Serious: Yes (Other)
  Sender: FDA-Public Use
  Company Number: None

PATIENT
  Age: 31 Year
  Sex: Male
  Weight: 63.5036 kg

DRUGS (1)
  1. CYMBALTA [Suspect]
     Indication: MAJOR DEPRESSION
     Dosage: 1 QD PO
     Route: 048
     Dates: start: 20120508, end: 20120512

REACTIONS (3)
  - ANGER [None]
  - AGGRESSION [None]
  - SUICIDAL IDEATION [None]
